FAERS Safety Report 10132278 (Version 2)
Quarter: 2014Q2

REPORT INFORMATION
  Report Type: Other
  Country: US (occurrence: US)
  Receive Date: 20140428
  Receipt Date: 20140625
  Transmission Date: 20141212
  Serious: Yes (Death, Hospitalization, Other)
  Sender: FDA-Public Use
  Company Number: US-GSKPPD-2014GSK033499

PATIENT
  Sex: Male

DRUGS (1)
  1. AVANDIA [Suspect]
     Indication: DIABETES MELLITUS
     Route: 048
     Dates: start: 20010615, end: 20070312

REACTIONS (5)
  - Arrhythmia [None]
  - Death [None]
  - Cardiac failure [None]
  - Liver injury [Recovered/Resolved]
  - Hepatic cirrhosis [Fatal]
